FAERS Safety Report 16869147 (Version 2)
Quarter: 2019Q4

REPORT INFORMATION
  Report Type: Spontaneous
  Country: US (occurrence: US)
  Receive Date: 20190930
  Receipt Date: 20191129
  Transmission Date: 20200122
  Serious: No
  Sender: FDA-Public Use
  Company Number: US-BAUSCH-BL-2019-026337

PATIENT
  Age: 74 Year
  Sex: Male

DRUGS (2)
  1. TIMOPTIC [Suspect]
     Active Substance: TIMOLOL MALEATE
     Indication: GLAUCOMA
     Route: 047
     Dates: start: 20190809, end: 20190810
  2. LUMIGAN [Concomitant]
     Active Substance: BIMATOPROST
     Indication: PRODUCT USED FOR UNKNOWN INDICATION

REACTIONS (5)
  - Eye swelling [Recovered/Resolved]
  - Eye pruritus [Unknown]
  - Ocular hyperaemia [Unknown]
  - Eye pain [Recovered/Resolved]
  - Product expiration date issue [Unknown]

NARRATIVE: CASE EVENT DATE: 201908
